FAERS Safety Report 17789325 (Version 5)
Quarter: 2024Q3

REPORT INFORMATION
  Report Type: Spontaneous
  Country: US (occurrence: US)
  Receive Date: 20200515
  Receipt Date: 20240918
  Transmission Date: 20241017
  Serious: Yes (Other)
  Sender: GILEAD
  Company Number: US-GILEAD-2020-0466940

PATIENT
  Age: 53 Year
  Sex: Female

DRUGS (1)
  1. TRUVADA [Suspect]
     Active Substance: EMTRICITABINE\TENOFOVIR DISOPROXIL FUMARATE
     Indication: HIV infection
     Dosage: UNK
     Route: 048
     Dates: start: 20110927, end: 20130925

REACTIONS (12)
  - End stage renal disease [Not Recovered/Not Resolved]
  - Chronic kidney disease [Recovered/Resolved]
  - Renal impairment [Recovered/Resolved]
  - Renal failure [Recovered/Resolved]
  - Osteonecrosis [Recovered/Resolved]
  - Tubulointerstitial nephritis [Recovered/Resolved]
  - Renal failure [Not Recovered/Not Resolved]
  - Acute kidney injury [Recovered/Resolved]
  - Bone loss [Unknown]
  - Anaemia [Recovered/Resolved]
  - Hyperparathyroidism secondary [Recovered/Resolved]
  - Gout [Recovered/Resolved]

NARRATIVE: CASE EVENT DATE: 20120315
